FAERS Safety Report 16707205 (Version 1)
Quarter: 2019Q3

REPORT INFORMATION
  Report Type: Spontaneous
  Country: US (occurrence: US)
  Receive Date: 20190630
  Receipt Date: 20190630
  Transmission Date: 20191004
  Serious: Yes (Hospitalization)
  Sender: FDA-Public Use
  Company Number: None

PATIENT
  Sex: Female

DRUGS (1)
  1. HUMIRA [Suspect]
     Active Substance: ADALIMUMAB
     Indication: CROHN^S DISEASE
     Route: 058
     Dates: start: 20190214

REACTIONS (7)
  - Loss of consciousness [None]
  - Transfusion [None]
  - Lip swelling [None]
  - International normalised ratio increased [None]
  - Large intestinal haemorrhage [None]
  - Blood pressure decreased [None]
  - Abdominal pain [None]
